FAERS Safety Report 12488850 (Version 1)
Quarter: 2016Q2

REPORT INFORMATION
  Report Type: Spontaneous
  Country: CN (occurrence: CN)
  Receive Date: 20160622
  Receipt Date: 20160622
  Transmission Date: 20160815
  Serious: Yes (Other)
  Sender: FDA-Public Use
  Company Number: CN-PFIZER INC-2016303717

PATIENT
  Age: 64 Year
  Sex: Female

DRUGS (1)
  1. INLYTA [Suspect]
     Active Substance: AXITINIB
     Indication: RENAL CANCER
     Dosage: 2 DF, 2X/DAY
     Route: 048
     Dates: start: 201606

REACTIONS (4)
  - Condition aggravated [Unknown]
  - Dementia Alzheimer^s type [Unknown]
  - Fatigue [Unknown]
  - Glassy eyes [Unknown]

NARRATIVE: CASE EVENT DATE: 201606
